FAERS Safety Report 4973001-2 (Version None)
Quarter: 2006Q2

REPORT INFORMATION
  Report Type: 
  Country: None (occurrence: None)
  Receive Date: 20060414
  Receipt Date: 20060330
  Transmission Date: 20061013
  Serious: Yes (Other)
  Sender: FDA-Public Use
  Company Number: FR-GLAXOSMITHKLINE-B0419222A

PATIENT
  Age: 35 Year
  Sex: Female

DRUGS (5)
  1. COMBIVIR [Suspect]
     Indication: PROPHYLAXIS AGAINST HIV INFECTION
     Route: 048
     Dates: start: 20060216, end: 20060227
  2. NORVIR [Suspect]
     Indication: PROPHYLAXIS AGAINST HIV INFECTION
     Dosage: 100MG PER DAY
     Route: 048
     Dates: start: 20060216, end: 20060317
  3. TELZIR [Suspect]
     Indication: PROPHYLAXIS AGAINST HIV INFECTION
     Dosage: 700MG TWICE PER DAY
     Route: 048
     Dates: start: 20060216, end: 20060317
  4. BROMAZEPAM [Concomitant]
     Indication: PREMEDICATION
     Dosage: 6MG AS REQUIRED
     Route: 048
     Dates: start: 20060216, end: 20060227
  5. ORAL CONTRACEPTION [Concomitant]
     Route: 048

REACTIONS (3)
  - DRUG ADMINISTRATION ERROR [None]
  - RASH MACULO-PAPULAR [None]
  - URTICARIA [None]
